FAERS Safety Report 20096626 (Version 6)
Quarter: 2022Q1

REPORT INFORMATION
  Report Type: Other
  Country: GR (occurrence: GR)
  Receive Date: 20211122
  Receipt Date: 20220303
  Transmission Date: 20220423
  Serious: Yes (Hospitalization, Other)
  Sender: FDA-Public Use
  Company Number: GR-ROCHE-2959048

PATIENT
  Age: 80 Year
  Sex: Male

DRUGS (3)
  1. RITUXIMAB [Suspect]
     Active Substance: RITUXIMAB
     Indication: Non-Hodgkin^s lymphoma
     Route: 042
  2. HYDROCORTISONE [Concomitant]
     Active Substance: HYDROCORTISONE
  3. APIXABAN [Concomitant]
     Active Substance: APIXABAN
     Dosage: 2,5 MG

REACTIONS (7)
  - Atrial fibrillation [Recovering/Resolving]
  - Hypertensive crisis [Recovering/Resolving]
  - Anaphylactic reaction [Recovering/Resolving]
  - Acute pulmonary oedema [Recovering/Resolving]
  - Myocardial infarction [Unknown]
  - Pulmonary oedema [Unknown]
  - Kounis syndrome [Unknown]
